FAERS Safety Report 20558882 (Version 1)
Quarter: 2022Q1

REPORT INFORMATION
  Report Type: Spontaneous
  Country: CA (occurrence: CA)
  Receive Date: 20220307
  Receipt Date: 20220307
  Transmission Date: 20220424
  Serious: Yes (Other)
  Sender: FDA-Public Use
  Company Number: None

PATIENT
  Age: 75 Year
  Sex: Male

DRUGS (4)
  1. MYCOPHENOLIC ACID [Suspect]
     Active Substance: MYCOPHENOLIC ACID
     Indication: Immunosuppressant drug therapy
  2. TACROLIMUS [Suspect]
     Active Substance: TACROLIMUS
     Indication: Renal transplant
  3. PREDNISONE [Suspect]
     Active Substance: PREDNISONE
     Indication: Renal transplant
  4. HUMAN IMMUNOGLOBULIN G [Suspect]
     Active Substance: HUMAN IMMUNOGLOBULIN G
     Indication: Immunosuppressant drug therapy

REACTIONS (5)
  - Malacoplakia gastrointestinal [Unknown]
  - Rhodococcus infection [Recovering/Resolving]
  - Kidney transplant rejection [Unknown]
  - Iron deficiency anaemia [Recovering/Resolving]
  - Malacoplakia [Recovering/Resolving]
